FAERS Safety Report 6667892-7 (Version None)
Quarter: 2010Q2

REPORT INFORMATION
  Report Type: 
  Country: None (occurrence: None)
  Receive Date: 20100405
  Receipt Date: 20100324
  Transmission Date: 20101027
  Serious: Yes (Other)
  Sender: FDA-Public Use
  Company Number: US-PFIZER INC-2008002877

PATIENT
  Sex: Female
  Weight: 47.619 kg

DRUGS (1)
  1. CHANTIX [Suspect]
     Indication: SMOKING CESSATION THERAPY
     Dosage: UNK
     Dates: start: 20081101, end: 20080101

REACTIONS (12)
  - AGGRESSION [None]
  - AGITATION [None]
  - ANXIETY [None]
  - CHEST DISCOMFORT [None]
  - DIARRHOEA [None]
  - HEADACHE [None]
  - MALAISE [None]
  - OBSESSIVE-COMPULSIVE DISORDER [None]
  - PALPITATIONS [None]
  - PSYCHOMOTOR HYPERACTIVITY [None]
  - RESTLESSNESS [None]
  - VOMITING [None]
